FAERS Safety Report 7658639-6 (Version None)
Quarter: 2011Q3

REPORT INFORMATION
  Report Type: 
  Country: None (occurrence: None)
  Receive Date: 20110805
  Receipt Date: 20110802
  Transmission Date: 20111222
  Serious: Yes (Hospitalization, Other)
  Sender: FDA-Public Use
  Company Number: US-BRISTOL-MYERS SQUIBB COMPANY-15944176

PATIENT
  Age: 72 Year
  Sex: Female
  Weight: 54 kg

DRUGS (2)
  1. TAXOL [Suspect]
     Indication: NON-SMALL CELL LUNG CANCER
     Dosage: LAST DOSE:13MAY11
     Dates: start: 20110413, end: 20110513
  2. CARBOPLATIN [Suspect]
     Indication: NON-SMALL CELL LUNG CANCER
     Dosage: LAST DOSE:13MAY11
     Dates: start: 20110413, end: 20110513

REACTIONS (5)
  - WEIGHT DECREASED [None]
  - HYPOMAGNESAEMIA [None]
  - DYSPHAGIA [None]
  - OESOPHAGEAL STENOSIS [None]
  - ANAEMIA [None]
